FAERS Safety Report 8860763 (Version 2)
Quarter: 2012Q4

REPORT INFORMATION
  Report Type: 
  Country: US (occurrence: US)
  Receive Date: 20121026
  Receipt Date: 20121213
  Transmission Date: 20130627
  Serious: Yes (Hospitalization)
  Sender: FDA-Public Use
  Company Number: US-MERCK-1210USA011850

PATIENT
  Age: 53 Year
  Sex: Male

DRUGS (5)
  1. MK-0991 [Suspect]
     Dosage: UNK
     Dates: start: 2012
  2. SPRYCEL [Suspect]
     Indication: ACUTE MYELOID LEUKAEMIA
     Dosage: 100 mg, Cyclical 1900 mg total
     Route: 048
     Dates: start: 20120328, end: 20120902
  3. CYTARABINE [Suspect]
     Indication: ACUTE MYELOID LEUKAEMIA
     Dosage: 200 mg/m2, Cyclical 40200 mg total
     Route: 042
     Dates: start: 20120328
  4. DAUNORUBICIN HYDROCHLORIDE [Suspect]
     Indication: ACUTE MYELOID LEUKAEMIA
     Dosage: 60 mg/m2, Cyclical
     Route: 042
     Dates: start: 20120328
  5. VORICONAZOLE [Suspect]

REACTIONS (2)
  - Aspartate aminotransferase increased [Recovering/Resolving]
  - Alanine aminotransferase increased [Recovering/Resolving]
